FAERS Safety Report 4275789-5 (Version None)
Quarter: 2004Q1

REPORT INFORMATION
  Report Type: 
  Country: None (occurrence: None)
  Receive Date: 20040121
  Receipt Date: 20040112
  Transmission Date: 20041129
  Serious: Yes (Other)
  Sender: FDA-Public Use
  Company Number: WAES 0401USA00806

PATIENT
  Age: 55 Year
  Sex: Female

DRUGS (8)
  1. [THERAPY UNSPECIFIED] [Concomitant]
  2. DICLOFENAC [Concomitant]
  3. DOXEPIN HYDROCHLORIDE [Concomitant]
  4. NEXIUM [Concomitant]
  5. ALLEGRA [Concomitant]
  6. COZAAR [Suspect]
     Indication: HYPERTENSION
     Route: 048
     Dates: start: 20040107, end: 20040107
  7. DETROL LA [Concomitant]
  8. ACCOLATE [Concomitant]

REACTIONS (4)
  - DYSPNOEA [None]
  - HEADACHE [None]
  - TREATMENT NONCOMPLIANCE [None]
  - WHEEZING [None]
